FAERS Safety Report 9505939 (Version 1)
Quarter: 2013Q1

REPORT INFORMATION
  Report Type: Spontaneous
  Country: US (occurrence: None)
  Receive Date: 20130305
  Receipt Date: 20130305
  Transmission Date: 20140127
  Serious: No
  Sender: FDA-Public Use
  Company Number: 1000039884

PATIENT
  Age: 71 Year
  Sex: Male

DRUGS (15)
  1. DALIRESP (ROFLUMILAST) (500 MICROGRAM, TABLETS) [Suspect]
     Indication: CHRONIC OBSTRUCTIVE PULMONARY DISEASE
     Dates: start: 2011, end: 2011
  2. LASIX [Concomitant]
  3. SPIRONOLACTONE [Concomitant]
  4. SPIRIVA [Concomitant]
  5. FORADIL [Concomitant]
  6. AMLODIPINE [Concomitant]
  7. FINASTERIDE [Concomitant]
  8. FLOMAX [Concomitant]
  9. PRAVASTATIN [Concomitant]
  10. AZOPT [Concomitant]
  11. LUMIGAN [Concomitant]
  12. OMEPRAZOLE [Concomitant]
  13. METOPROLOL [Concomitant]
  14. FOSAMAX [Concomitant]
  15. LEVOFLOXACIN [Concomitant]

REACTIONS (1)
  - Diarrhoea [None]
